FAERS Safety Report 4613679-6 (Version None)
Quarter: 2005Q1

REPORT INFORMATION
  Report Type: 
  Country: None (occurrence: None)
  Receive Date: 20050321
  Receipt Date: 20050304
  Transmission Date: 20050727
  Serious: Yes (Other)
  Sender: FDA-Public Use
  Company Number: 200511747US

PATIENT
  Age: 31 Year
  Sex: 0

DRUGS (7)
  1. LOVENOX [Suspect]
     Dates: start: 20040722, end: 20041227
  2. ANALGESICS [Concomitant]
     Dosage: DOSE: UNK
  3. COUMADIN [Concomitant]
     Dosage: DOSE: UNK
  4. DILANTIN [Concomitant]
  5. OXYCODONE HCL [Concomitant]
     Dosage: DOSE: UNK
  6. XANAX [Concomitant]
     Dosage: DOSE: UNK
  7. SOMA [Concomitant]
     Dosage: DOSE: UNK

REACTIONS (1)
  - HEPATITIS B [None]
